FAERS Safety Report 23571847 (Version 1)
Quarter: 2024Q1

REPORT INFORMATION
  Report Type: Spontaneous
  Country: US (occurrence: None)
  Receive Date: 20240227
  Receipt Date: 20240227
  Transmission Date: 20240410
  Serious: Yes (Other)
  Sender: FDA-Public Use
  Company Number: 2024A031016

PATIENT
  Sex: Male

DRUGS (2)
  1. OLAPARIB [Suspect]
     Active Substance: OLAPARIB
     Dosage: UNKNOWN
     Route: 048
     Dates: start: 202307
  2. OLAPARIB [Suspect]
     Active Substance: OLAPARIB
     Dosage: REDUCED DOSE UNKNOWN
     Route: 048

REACTIONS (2)
  - Anaemia [Unknown]
  - Fatigue [Unknown]
